FAERS Safety Report 6517620-0 (Version None)
Quarter: 2009Q4

REPORT INFORMATION
  Report Type: 
  Country: None (occurrence: None)
  Receive Date: 20091224
  Receipt Date: 20091215
  Transmission Date: 20100525
  Serious: No
  Sender: FDA-Public Use
  Company Number: PHHY2009AU55273

PATIENT
  Sex: Female

DRUGS (3)
  1. TASIGNA [Suspect]
     Indication: CHRONIC MYELOID LEUKAEMIA
     Dosage: UNK
     Route: 048
     Dates: start: 20090401
  2. TASIGNA [Suspect]
     Dosage: 600 MG, UNK
     Route: 048
  3. WARFARIN SODIUM [Concomitant]
     Indication: CARDIAC VALVE DISEASE
     Dosage: UNK

REACTIONS (1)
  - CONJUNCTIVAL HAEMORRHAGE [None]
